FAERS Safety Report 7522687-7 (Version None)
Quarter: 2011Q2

REPORT INFORMATION
  Report Type: 
  Country: None (occurrence: None)
  Receive Date: 20110603
  Receipt Date: 20101214
  Transmission Date: 20111010
  Serious: Yes (Death, Other)
  Sender: FDA-Public Use
  Company Number: JP-BAYER-200912386BYL

PATIENT
  Age: 61 Year
  Sex: Male
  Weight: 77.7 kg

DRUGS (2)
  1. NEXAVAR [Suspect]
     Indication: RENAL CELL CARCINOMA STAGE IV
     Dosage: 800 MG (DAILY DOSE), , ORAL
     Route: 048
     Dates: start: 20081205, end: 20090206
  2. NEXAVAR [Suspect]
     Dosage: 800 MG, QD
     Route: 048
     Dates: start: 20090331, end: 20090824

REACTIONS (5)
  - ALOPECIA [None]
  - RASH [None]
  - PALMAR-PLANTAR ERYTHRODYSAESTHESIA SYNDROME [None]
  - RENAL CANCER [None]
  - HEPATIC FUNCTION ABNORMAL [None]
